FAERS Safety Report 11905159 (Version 1)
Quarter: 2016Q1

REPORT INFORMATION
  Report Type: Spontaneous
  Country: US (occurrence: US)
  Receive Date: 20160109
  Receipt Date: 20160109
  Transmission Date: 20160526
  Serious: No
  Sender: FDA-Public Use
  Company Number: US-JNJFOC-20151218399

PATIENT

DRUGS (1)
  1. RISPERDAL [Suspect]
     Active Substance: RISPERIDONE
     Indication: PRODUCT USED FOR UNKNOWN INDICATION
     Route: 065

REACTIONS (8)
  - Grimacing [Unknown]
  - Fear [Unknown]
  - Agitation [Unknown]
  - Restlessness [Unknown]
  - Overdose [Unknown]
  - Emotional distress [Unknown]
  - Thinking abnormal [Unknown]
  - Insomnia [Unknown]
